FAERS Safety Report 23052698 (Version 5)
Quarter: 2025Q1

REPORT INFORMATION
  Report Type: Spontaneous
  Country: US (occurrence: US)
  Receive Date: 20231011
  Receipt Date: 20250222
  Transmission Date: 20250408
  Serious: No
  Sender: SANOFI AVENTIS
  Company Number: US-SA-SAC20231009000576

PATIENT
  Age: 65 Year
  Sex: Male
  Weight: 93.8 kg

DRUGS (3)
  1. DUPIXENT [Suspect]
     Active Substance: DUPILUMAB
     Indication: Dermatitis atopic
     Route: 058
  2. DUPIXENT [Suspect]
     Active Substance: DUPILUMAB
     Indication: Eczema
     Dosage: 300 MG, QOW
     Route: 058
     Dates: start: 20220715
  3. DUPIXENT [Suspect]
     Active Substance: DUPILUMAB
     Dosage: 300 MG, QOW
     Route: 058
     Dates: start: 202311

REACTIONS (7)
  - Skin fissures [Unknown]
  - Intentional dose omission [Unknown]
  - Pain [Unknown]
  - Rebound atopic dermatitis [Unknown]
  - Dermatitis atopic [Unknown]
  - Rash [Unknown]
  - Stress [Unknown]

NARRATIVE: CASE EVENT DATE: 20241001
